FAERS Safety Report 8212562-7 (Version None)
Quarter: 2012Q1

REPORT INFORMATION
  Report Type: 
  Country: None (occurrence: None)
  Receive Date: 20120315
  Receipt Date: 20120302
  Transmission Date: 20120608
  Serious: No
  Sender: FDA-Public Use
  Company Number: US-B.I. PHARMACEUTICALS,INC./RIDGEFIELD-2012-BP-04106BP

PATIENT
  Sex: Female

DRUGS (7)
  1. PRILOSEC [Concomitant]
  2. SINGULAIR [Concomitant]
  3. SPIRIVA [Suspect]
     Indication: CHRONIC OBSTRUCTIVE PULMONARY DISEASE
     Dosage: 18 MCG
     Route: 055
     Dates: start: 20110901
  4. HYDROXYZINE [Concomitant]
  5. ALLEGRA [Concomitant]
  6. KLONOPIN [Concomitant]
  7. DIOVAN [Concomitant]

REACTIONS (1)
  - ANXIETY [None]
